FAERS Safety Report 8122977-3 (Version None)
Quarter: 2012Q1

REPORT INFORMATION
  Report Type: 
  Country: None (occurrence: None)
  Receive Date: 20120208
  Receipt Date: 20120130
  Transmission Date: 20120608
  Serious: Yes (Hospitalization)
  Sender: FDA-Public Use
  Company Number: AU-BRISTOL-MYERS SQUIBB COMPANY-16375727

PATIENT
  Age: 66 Year
  Sex: Male

DRUGS (11)
  1. PERINDOPRIL ERBUMINE [Concomitant]
     Dates: start: 20101029
  2. CARBOPLATIN [Suspect]
     Indication: NEOPLASM
     Dosage: INTERRUPTED ON 30JAN12,CYCLE 2
     Route: 042
     Dates: start: 20111102
  3. NEXIUM [Concomitant]
     Dates: start: 20111116
  4. CIPROFLOXACIN [Concomitant]
     Dates: start: 20111126
  5. LIPITOR [Concomitant]
     Dates: start: 20101101
  6. BMS754807 [Suspect]
     Indication: NEOPLASM
     Dosage: INTERRUPTED ON 04JAN12,CYCLE 2
     Route: 048
     Dates: start: 20111103
  7. ASPIRIN [Concomitant]
     Dates: start: 20101101
  8. METOCLOPRAMIDE [Concomitant]
     Dates: start: 20111103
  9. PACLITAXEL [Suspect]
     Indication: NEOPLASM
     Dosage: INTERRUPTED ON 30JAN12,CYCLE 2
     Route: 042
     Dates: start: 20111102
  10. NORSPAN [Concomitant]
     Dosage: PATCH
     Dates: start: 20110907
  11. LORAZEPAM [Concomitant]
     Dates: start: 20111116

REACTIONS (1)
  - ACUTE MYOCARDIAL INFARCTION [None]
